FAERS Safety Report 7343390-2 (Version None)
Quarter: 2011Q1

REPORT INFORMATION
  Report Type: 
  Country: None (occurrence: None)
  Receive Date: 20110228
  Receipt Date: 20110217
  Transmission Date: 20110831
  Serious: Yes (Other)
  Sender: FDA-Public Use
  Company Number: 2010SP063112

PATIENT
  Age: 26 Year
  Sex: Female
  Weight: 52 kg

DRUGS (3)
  1. IMPLANON [Suspect]
     Indication: CONTRACEPTION
     Dates: start: 20071109
  2. IMPLANON [Suspect]
     Indication: CONTRACEPTION
     Dates: start: 20040101, end: 20071109
  3. CERAZETTE (DESOGESTREL /00754001/) [Suspect]
     Indication: CONTRACEPTION
     Dates: start: 20101201, end: 20110104

REACTIONS (11)
  - AUTOANTIBODY POSITIVE [None]
  - ABDOMINAL PAIN [None]
  - STRESS AT WORK [None]
  - WEIGHT DECREASED [None]
  - DEVICE DISLOCATION [None]
  - VULVOVAGINAL MYCOTIC INFECTION [None]
  - POLYCYSTIC OVARIES [None]
  - MENSTRUATION IRREGULAR [None]
  - HYPOTHYROIDISM [None]
  - PROCEDURAL PAIN [None]
  - SOMATOFORM DISORDER [None]
